FAERS Safety Report 5118784-6 (Version None)
Quarter: 2006Q4

REPORT INFORMATION
  Report Type: 
  Country: None (occurrence: None)
  Receive Date: 20061002
  Receipt Date: 20060920
  Transmission Date: 20070319
  Serious: Yes (Hospitalization)
  Sender: FDA-Public Use
  Company Number: US-ROCHE-464115

PATIENT
  Age: 81 Year
  Sex: Female
  Weight: 59.9 kg

DRUGS (8)
  1. BONIVA [Suspect]
     Indication: OSTEOPOROSIS
     Route: 048
     Dates: start: 20060712
  2. ETODOLAC [Concomitant]
     Indication: PAIN
     Dosage: FREQUENCY REPORTED AS DAILY.
     Route: 048
  3. MONOPRIL [Concomitant]
     Indication: HYPERTENSION
     Dosage: FREQUENCY REPORTED AS DAILY.
     Route: 048
  4. SYNTHROID [Concomitant]
     Indication: HYPOTHYROIDISM
     Dosage: FREQUENCY REPORTED AS DAILY.
     Route: 048
  5. TIAZAC [Concomitant]
     Indication: HYPERTENSION
     Dosage: FREQUENCY REPORTED AS DAILY.
     Route: 048
  6. DICYCLOMINE [Concomitant]
     Dosage: FREQUENCY REPORTED AS DAILY.
  7. NEURONTIN [Concomitant]
     Indication: NEUROPATHY
     Dosage: FREQUENCY REPORTED AS DAILY.
  8. ZETIA [Concomitant]
     Indication: HYPERTENSION
     Dosage: FREQUENCY REPORTED AS DAILY.

REACTIONS (1)
  - DIVERTICULITIS [None]
